FAERS Safety Report 11780750 (Version 2)
Quarter: 2015Q4

REPORT INFORMATION
  Report Type: Spontaneous
  Country: JP (occurrence: JP)
  Receive Date: 20151126
  Receipt Date: 20151206
  Transmission Date: 20160305
  Serious: No
  Sender: FDA-Public Use
  Company Number: JP-ASTRAZENECA-2015SF17781

PATIENT
  Age: 812 Month
  Sex: Female
  Weight: 48 kg

DRUGS (10)
  1. FORXIGA [Suspect]
     Active Substance: DAPAGLIFLOZIN
     Indication: TYPE 2 DIABETES MELLITUS
     Route: 048
     Dates: start: 20150916, end: 20151111
  2. TRYPTANOL [Concomitant]
     Active Substance: AMITRIPTYLINE
     Dosage: STARTED BEFORE 2012 10 MG TID
     Route: 048
  3. DIOVAN [Concomitant]
     Active Substance: VALSARTAN
     Dosage: STARTED BEFORE 2012 80 MG DAILY
     Route: 048
  4. TEGRETOL [Concomitant]
     Active Substance: CARBAMAZEPINE
     Dosage: STARTED BEFORE 2012 200 MG DAILY
     Route: 048
  5. GLIMEPIRIDE. [Concomitant]
     Active Substance: GLIMEPIRIDE
     Dosage: DOSE UNKNOWN
     Route: 048
     Dates: start: 20150819, end: 20151111
  6. DOXAZON [Concomitant]
     Dosage: STARTED BEFORE 2012 2 MG DAILY
     Route: 048
  7. NIFEDIPINE CR [Concomitant]
     Active Substance: NIFEDIPINE
     Dosage: STARTED BEFORE 2012 40 MG DAILY
     Route: 048
  8. FLUITRAN [Concomitant]
     Active Substance: TRICHLORMETHIAZIDE
     Dosage: STARTED BEFORE 2012 2 MG DAILY
     Route: 048
  9. ARTIST [Concomitant]
     Active Substance: CARVEDILOL
     Dosage: STARTED BEFORE 2012 10 MG DAILY
     Route: 048
  10. LIVALO [Concomitant]
     Active Substance: PITAVASTATIN CALCIUM
     Route: 048
     Dates: start: 20151021

REACTIONS (1)
  - Pruritus genital [Recovered/Resolved]

NARRATIVE: CASE EVENT DATE: 201510
